FAERS Safety Report 7192640-4 (Version None)
Quarter: 2010Q4

REPORT INFORMATION
  Report Type: 
  Country: None (occurrence: None)
  Receive Date: 20101223
  Receipt Date: 20100826
  Transmission Date: 20110411
  Serious: No
  Sender: FDA-Public Use
  Company Number: US-AMGEN-KDL434201

PATIENT

DRUGS (20)
  1. ENBREL [Suspect]
     Indication: PRODUCT USED FOR UNKNOWN INDICATION
     Dosage: 50 MG, QWK
     Route: 058
  2. AMLODIPINE [Concomitant]
     Dosage: 10 MG, UNK
  3. MELOXICAM [Concomitant]
     Dosage: 15 MG, UNK
  4. METHOTREXATE [Concomitant]
     Dosage: 2.5 MG, UNK
  5. LEVOTHYROXINE SODIUM [Concomitant]
     Dosage: 25 MG, UNK
  6. CITALOPRAM HYDROBROMIDE [Concomitant]
     Dosage: 40 MG, UNK
  7. OMEPRAZOLE [Concomitant]
     Dosage: 20 MG, UNK
  8. FOLIC ACID [Concomitant]
     Dosage: 1 MG, UNK
  9. HYDROCHLOROTHIAZIDE [Concomitant]
     Dosage: 25 MG, UNK
  10. FLUTICASONE PROPIONATE [Concomitant]
     Dosage: .05 %, UNK
  11. BUDESONIDE/FORMOTEROL FUMARATE [Concomitant]
  12. ALPRAZOLAM [Concomitant]
     Dosage: .5 MG, UNK
  13. HYDROXYZINE [Concomitant]
     Dosage: 10 MG, UNK
  14. OXYCODONE [Concomitant]
     Dosage: 5 MG, UNK
  15. CYANOCOBALAMIN [Concomitant]
     Dosage: UNK UNK, UNK
  16. CALCIUM/VITAMIN D [Concomitant]
  17. COLECALCIFEROL [Concomitant]
     Dosage: 1000 IU, UNK
  18. ALBUTEROL SULFATE [Concomitant]
  19. ASPIRIN [Concomitant]
     Dosage: 81 MG, UNK
  20. EPINEPHRINE [Concomitant]
     Dosage: .3 MG, UNK

REACTIONS (2)
  - COUGH [None]
  - LYMPHADENOPATHY [None]
